FAERS Safety Report 18406977 (Version 1)
Quarter: 2020Q4

REPORT INFORMATION
  Report Type: Spontaneous
  Country: MA (occurrence: MA)
  Receive Date: 20201020
  Receipt Date: 20201020
  Transmission Date: 20210114
  Serious: Yes (Hospitalization, Other)
  Sender: FDA-Public Use
  Company Number: MA-IPCA LABORATORIES LIMITED-IPC-2020-MA-003281

PATIENT

DRUGS (2)
  1. AZITHROMYCIN ANHYDROUS. [Suspect]
     Active Substance: AZITHROMYCIN ANHYDROUS
     Indication: COVID-19
     Dosage: 250 MILLIGRAM, QD
     Route: 065
  2. HYDROXYCHLOROQUINE [Suspect]
     Active Substance: HYDROXYCHLOROQUINE
     Indication: COVID-19
     Dosage: 600 MILLIGRAM, TID
     Route: 065

REACTIONS (3)
  - Torsade de pointes [Recovered/Resolved]
  - Arrhythmia [Recovered/Resolved]
  - Electrocardiogram QRS complex abnormal [Recovered/Resolved]
